FAERS Safety Report 24883100 (Version 1)
Quarter: 2025Q1

REPORT INFORMATION
  Report Type: Spontaneous
  Country: CN (occurrence: CN)
  Receive Date: 20250124
  Receipt Date: 20250124
  Transmission Date: 20250408
  Serious: Yes (Disabling, Other)
  Sender: BAXTER
  Company Number: None

PATIENT
  Age: 72 Year
  Sex: Male
  Weight: 52 kg

DRUGS (4)
  1. CYCLOPHOSPHAMIDE [Suspect]
     Active Substance: CYCLOPHOSPHAMIDE
     Indication: Anti-neutrophil cytoplasmic antibody positive vasculitis
     Route: 041
     Dates: start: 20250109, end: 20250109
  2. CYCLOPHOSPHAMIDE [Suspect]
     Active Substance: CYCLOPHOSPHAMIDE
     Route: 041
     Dates: start: 20250111, end: 20250111
  3. SODIUM CHLORIDE [Suspect]
     Active Substance: SODIUM CHLORIDE
     Indication: Medication dilution
     Route: 041
     Dates: start: 20250109, end: 20250109
  4. SODIUM CHLORIDE [Suspect]
     Active Substance: SODIUM CHLORIDE
     Route: 041
     Dates: start: 20250111, end: 20250111

REACTIONS (5)
  - Condition aggravated [Unknown]
  - Anti-neutrophil cytoplasmic antibody positive vasculitis [Unknown]
  - Retroperitoneal haematoma [Unknown]
  - Haemorrhage [Unknown]
  - Pallor [Unknown]

NARRATIVE: CASE EVENT DATE: 20250112
